FAERS Safety Report 13156151 (Version 1)
Quarter: 2017Q1

REPORT INFORMATION
  Report Type: Spontaneous
  Country: IT (occurrence: IT)
  Receive Date: 20170126
  Receipt Date: 20170126
  Transmission Date: 20170428
  Serious: Yes (Other)
  Sender: FDA-Public Use
  Company Number: IT-MERCK KGAA-1062401

PATIENT
  Age: 39 Year
  Sex: Female

DRUGS (3)
  1. NOVOTHYROX [Suspect]
     Active Substance: LEVOTHYROXINE SODIUM
     Dates: end: 20161206
  2. YASMINELLE [Concomitant]
     Active Substance: DROSPIRENONE
  3. NOVOTHYROX [Suspect]
     Active Substance: LEVOTHYROXINE SODIUM
     Indication: THYROID DISORDER
     Dates: start: 2006

REACTIONS (6)
  - Malabsorption [None]
  - Blood pressure increased [None]
  - Cardiac failure [Not Recovered/Not Resolved]
  - Blood thyroid stimulating hormone increased [None]
  - Tri-iodothyronine free abnormal [None]
  - Alopecia [None]

NARRATIVE: CASE EVENT DATE: 201611
